FAERS Safety Report 10171190 (Version 1)
Quarter: 2014Q2

REPORT INFORMATION
  Report Type: Spontaneous
  Country: US (occurrence: None)
  Receive Date: 20140425
  Receipt Date: 20140425
  Transmission Date: 20141212
  Serious: Yes (Other)
  Sender: FDA-Public Use
  Company Number: 2013SGN00535

PATIENT
  Sex: Male

DRUGS (6)
  1. ADCETRIS (BRENTUXIMAB VEDOTIN) INJECTION [Suspect]
     Indication: T-CELL PROLYMPHOCYTIC LEUKAEMIA
     Route: 042
  2. CLADRIBINE [Suspect]
     Indication: T-CELL PROLYMPHOCYTIC LEUKAEMIA
     Dosage: QCYCLE
     Route: 042
  3. CHEMOTHERAPEUTICS NOS [Suspect]
     Indication: T-CELL PROLYMPHOCYTIC LEUKAEMIA
     Dosage: QCYCLE
  4. ALEMTUZUMAB [Suspect]
     Indication: T-CELL PROLYMPHOCYTIC LEUKAEMIA
     Dosage: QCYCLE
     Route: 058
  5. VORINOSTAT [Suspect]
     Indication: T-CELL PROLYMPHOCYTIC LEUKAEMIA
     Dosage: QCYCLE
     Route: 048
  6. CHEMOTHERAPEUTICS NOS [Suspect]
     Indication: T-CELL PROLYMPHOCYTIC LEUKAEMIA

REACTIONS (2)
  - Off label use [None]
  - No adverse event [None]
